FAERS Safety Report 4545349-7 (Version None)
Quarter: 2005Q1

REPORT INFORMATION
  Report Type: 
  Country: None (occurrence: None)
  Receive Date: 20050103
  Receipt Date: 20041223
  Transmission Date: 20050727
  Serious: Yes (Life-Threatening, Hospitalization)
  Sender: FDA-Public Use
  Company Number: F01200404028

PATIENT
  Age: 60 Year
  Sex: Male

DRUGS (8)
  1. OXALIPLATIN SOLUTION 130 MG/M2 [Suspect]
     Indication: GASTROOESOPHAGEAL CANCER
     Dosage: 130 MG/M2 Q3W
     Route: 042
     Dates: start: 20041108, end: 20041108
  2. FLUOROURACIL [Suspect]
     Dosage: 200 MG/M2 CONT
     Route: 042
     Dates: start: 20041108, end: 20041108
  3. EPIRUBICIN [Suspect]
     Dosage: 50 MG/M2 Q3W
     Route: 040
     Dates: start: 20041108, end: 20041108
  4. TINSAPARIN (TINAZAPARIN SODIUM) [Concomitant]
  5. BENDROFLUAZIDE [Concomitant]
  6. ATENOLOL [Concomitant]
  7. FELODIPINE [Concomitant]
  8. OMEPRAZOLE [Concomitant]

REACTIONS (3)
  - CATHETER RELATED COMPLICATION [None]
  - GASTROINTESTINAL HAEMORRHAGE [None]
  - HAEMOGLOBIN DECREASED [None]
